FAERS Safety Report 5798996-9 (Version None)
Quarter: 2008Q3

REPORT INFORMATION
  Report Type: 
  Country: None (occurrence: None)
  Receive Date: 20080702
  Receipt Date: 20080311
  Transmission Date: 20090109
  Serious: Yes (Disabling)
  Sender: FDA-Public Use
  Company Number: US-BRISTOL-MYERS SQUIBB COMPANY-14044168

PATIENT
  Age: 94 Year
  Sex: Female

DRUGS (12)
  1. SPRYCEL [Suspect]
     Indication: CHRONIC MYELOID LEUKAEMIA
     Dosage: DATES:09MAR-25APR07/01MAY-24AUG07
     Route: 048
     Dates: start: 20071007, end: 20080114
  2. ARANESP [Concomitant]
     Dosage: FREQUENCY: ALSO AS 3WKS
  3. DITROPAN [Concomitant]
  4. PAXIL [Concomitant]
  5. M.V.I. [Concomitant]
  6. ASPIRIN [Concomitant]
  7. LASIX [Concomitant]
  8. SPIRIVA [Concomitant]
  9. TAMOXIFEN CITRATE [Concomitant]
  10. TYLENOL [Concomitant]
  11. KLOR-CON [Concomitant]
  12. COLACE [Concomitant]

REACTIONS (1)
  - HAEMATOMA [None]
